FAERS Safety Report 11896912 (Version 1)
Quarter: 2016Q1

REPORT INFORMATION
  Report Type: Spontaneous
  Country: None (occurrence: US)
  Receive Date: 20160107
  Receipt Date: 20160107
  Transmission Date: 20160526
  Serious: No
  Sender: FDA-Public Use
  Company Number: US-ALLERGAN-1519528US

PATIENT
  Sex: Female

DRUGS (1)
  1. ACZONE [Suspect]
     Active Substance: DAPSONE
     Indication: ACNE CYSTIC
     Dosage: UNK
     Route: 061
     Dates: start: 2014

REACTIONS (2)
  - Skin hyperpigmentation [Unknown]
  - Drug ineffective [Unknown]
